FAERS Safety Report 15224806 (Version 3)
Quarter: 2018Q3

REPORT INFORMATION
  Report Type: Spontaneous
  Country: US (occurrence: US)
  Receive Date: 20180731
  Receipt Date: 20180913
  Transmission Date: 20181010
  Serious: Yes (Hospitalization)
  Sender: FDA-Public Use
  Company Number: US-TAKEDA-2018TUS023234

PATIENT
  Age: 68 Year
  Sex: Male

DRUGS (1)
  1. ALUNBRIG [Suspect]
     Active Substance: BRIGATINIB
     Indication: RENAL CANCER
     Dosage: 90 MG, QD
     Route: 048
     Dates: start: 20180729, end: 20180809

REACTIONS (8)
  - Diarrhoea [Unknown]
  - Off label use [Unknown]
  - Pneumonia [Unknown]
  - Cough [Unknown]
  - Abdominal distension [Unknown]
  - Back pain [Unknown]
  - Chest discomfort [Unknown]
  - Fatigue [Unknown]

NARRATIVE: CASE EVENT DATE: 20180724
